FAERS Safety Report 4729943-6 (Version None)
Quarter: 2005Q3

REPORT INFORMATION
  Report Type: 
  Country: None (occurrence: None)
  Receive Date: 20050729
  Receipt Date: 20050729
  Transmission Date: 20060218
  Serious: No
  Sender: FDA-Public Use
  Company Number: None

PATIENT
  Age: 60 Year
  Sex: Male
  Weight: 68.0396 kg

DRUGS (1)
  1. MIRAPEX [Suspect]
     Indication: DYSKINESIA
     Dosage: 4X DAY
     Dates: start: 20030401, end: 20050701

REACTIONS (2)
  - ECONOMIC PROBLEM [None]
  - GAMBLING [None]
